FAERS Safety Report 5186193-X (Version None)
Quarter: 2006Q4

REPORT INFORMATION
  Report Type: 
  Country: None (occurrence: None)
  Receive Date: 20061220
  Receipt Date: 20061103
  Transmission Date: 20070319
  Serious: No
  Sender: FDA-Public Use
  Company Number: US-GLAXOSMITHKLINE-A0626094A

PATIENT
  Age: 31 Year
  Sex: Female

DRUGS (1)
  1. EQUATE NTS 14MG [Suspect]
     Dates: start: 20061101, end: 20061101

REACTIONS (5)
  - APPLICATION SITE ERYTHEMA [None]
  - APPLICATION SITE PRURITUS [None]
  - APPLICATION SITE URTICARIA [None]
  - HYPOAESTHESIA [None]
  - PARAESTHESIA [None]
